FAERS Safety Report 19286835 (Version 1)
Quarter: 2021Q2

REPORT INFORMATION
  Report Type: Report from Study
  Country: US (occurrence: US)
  Receive Date: 20210521
  Receipt Date: 20210521
  Transmission Date: 20210717
  Serious: Yes (Hospitalization)
  Sender: FDA-Public Use
  Company Number: US-BIOGEN-2021BI01012833

PATIENT
  Sex: Female

DRUGS (1)
  1. TECFIDERA [Suspect]
     Active Substance: DIMETHYL FUMARATE
     Indication: MULTIPLE SCLEROSIS
     Dosage: MAINTENANCE DOSE
     Route: 048
     Dates: start: 202012

REACTIONS (9)
  - Mental status changes [Unknown]
  - Dyspnoea [Unknown]
  - Cognitive disorder [Unknown]
  - Balance disorder [Unknown]
  - Lymphocyte count decreased [Unknown]
  - Depression [Unknown]
  - Flushing [Unknown]
  - Abdominal discomfort [Unknown]
  - Dehydration [Unknown]
